FAERS Safety Report 14352309 (Version 1)
Quarter: 2018Q1

REPORT INFORMATION
  Report Type: Other
  Country: US (occurrence: US)
  Receive Date: 20180104
  Receipt Date: 20180104
  Transmission Date: 20180509
  Serious: Yes (Death)
  Sender: FDA-Public Use
  Company Number: US-OSMOTICA_PHARMACEUTICAL_US_LLC-POI0573201800002

PATIENT
  Age: 38 Year
  Sex: Male

DRUGS (9)
  1. DIPHENHYDRAMINE. [Suspect]
     Active Substance: DIPHENHYDRAMINE
     Dates: end: 2016
  2. ESZOPICLONE. [Suspect]
     Active Substance: ESZOPICLONE
     Dates: end: 2016
  3. ALCOHOL. [Suspect]
     Active Substance: ALCOHOL
     Dates: end: 2016
  4. LISINOPRIL. [Suspect]
     Active Substance: LISINOPRIL
     Dates: end: 2016
  5. LAMOTRIGINE. [Suspect]
     Active Substance: LAMOTRIGINE
     Dates: end: 2016
  6. TRAZODONE [Suspect]
     Active Substance: TRAZODONE HYDROCHLORIDE
     Dates: end: 2016
  7. OXYBUTYNIN CHLORIDE. [Suspect]
     Active Substance: OXYBUTYNIN CHLORIDE
     Dates: end: 2016
  8. METOPROLOL. [Suspect]
     Active Substance: METOPROLOL
     Dates: end: 2016
  9. VALPROIC ACID. [Suspect]
     Active Substance: VALPROIC ACID
     Dates: end: 2016

REACTIONS (1)
  - Completed suicide [Fatal]

NARRATIVE: CASE EVENT DATE: 2016
